FAERS Safety Report 4690386-5 (Version None)
Quarter: 2005Q2

REPORT INFORMATION
  Report Type: 
  Country: None (occurrence: None)
  Receive Date: 20050613
  Receipt Date: 20050601
  Transmission Date: 20051028
  Serious: Yes (Hospitalization)
  Sender: FDA-Public Use
  Company Number: 214825

PATIENT
  Age: 14 Year
  Sex: Male
  Weight: 58.2 kg

DRUGS (4)
  1. NUTROPIN [Suspect]
     Indication: HYPOPITUITARISM
     Dosage: 2.2. MG, QDX6D/WK, SUBCUTANEOUS
     Route: 058
     Dates: start: 19950404, end: 20050505
  2. SYNTHROID [Concomitant]
  3. DDAVP (DESMOPRESSIN ACETATE) [Concomitant]
  4. PREDNISONE [Concomitant]

REACTIONS (11)
  - ABDOMINAL PAIN [None]
  - ACUTE LYMPHOCYTIC LEUKAEMIA [None]
  - ARTHRALGIA [None]
  - BACK PAIN [None]
  - BLOOD SODIUM DECREASED [None]
  - BLOOD UREA INCREASED [None]
  - CAECITIS [None]
  - DECREASED ACTIVITY [None]
  - ORAL INTAKE REDUCED [None]
  - PLATELET COUNT DECREASED [None]
  - PYREXIA [None]
